FAERS Safety Report 8819303 (Version 1)
Quarter: 2012Q4

REPORT INFORMATION
  Report Type: Spontaneous
  Country: DK (occurrence: None)
  Receive Date: 20121003
  Receipt Date: 20121003
  Transmission Date: 20130627
  Serious: Yes (Other)
  Sender: FDA-Public Use
  Company Number: 2012MA011774

PATIENT
  Age: 50 Year
  Sex: Female

DRUGS (2)
  1. SERTRALINE [Suspect]
     Route: 048
     Dates: start: 20120807, end: 20120813
  2. METFORMIN [Concomitant]

REACTIONS (4)
  - Visual impairment [None]
  - Dizziness [None]
  - Disorientation [None]
  - Drug prescribing error [None]
